FAERS Safety Report 8766703 (Version 1)
Quarter: 2012Q4

REPORT INFORMATION
  Report Type: 
  Country: US (occurrence: US)
  Receive Date: 20120904
  Receipt Date: 20120904
  Transmission Date: 20130627
  Serious: No
  Sender: FDA-Public Use
  Company Number: US-MYLANLABS-2011S1015908

PATIENT
  Age: 48 Year
  Sex: Female
  Weight: 36.29 kg

DRUGS (3)
  1. FLUPHENAZINE HYDROCHLORIDE TABLETS, USP [Suspect]
     Indication: PSYCHOTIC DISORDER
     Route: 048
     Dates: start: 20110318, end: 20110328
  2. THORAZINE /00011901/ [Concomitant]
     Indication: PSYCHOTIC DISORDER
  3. SYNTHROID [Concomitant]
     Indication: THYROID DISORDER

REACTIONS (3)
  - Aggression [Not Recovered/Not Resolved]
  - Hostility [Not Recovered/Not Resolved]
  - Negative thoughts [Not Recovered/Not Resolved]
